FAERS Safety Report 4956977-9 (Version None)
Quarter: 2006Q1

REPORT INFORMATION
  Report Type: 
  Country: None (occurrence: None)
  Receive Date: 20060329
  Receipt Date: 20040218
  Transmission Date: 20060701
  Serious: Yes (Other)
  Sender: FDA-Public Use
  Company Number: US-GILEAD-2004-06704

PATIENT
  Sex: Male
  Weight: 35.7 kg

DRUGS (12)
  1. TENOFOVIR DISOPROXIL FUMARATE [Suspect]
     Indication: HIV INFECTION
     Route: 048
     Dates: start: 20020123
  2. LAMIVUDINE [Concomitant]
     Dates: start: 20020814
  3. STAVUDINE [Concomitant]
     Dates: start: 20020814
  4. KALETRA [Concomitant]
     Dates: start: 20021224
  5. IBUPROFEN [Concomitant]
     Dates: start: 20030217
  6. LOPERAMIDE [Concomitant]
     Dates: start: 20031201
  7. FLUTICASONE PROPIONATE [Concomitant]
     Dates: start: 20020219
  8. M.V.I. [Concomitant]
     Dates: start: 20021003
  9. AVEENO LOTION [Concomitant]
     Dates: start: 20011231
  10. CYPROHEPTADINE HCL [Concomitant]
     Dates: start: 20030317
  11. PEPTO-BISMOL [Concomitant]
     Dates: start: 20020318
  12. CONCERTA [Concomitant]
     Dates: start: 20021123

REACTIONS (2)
  - BONE DENSITY DECREASED [None]
  - SKELETAL INJURY [None]
